FAERS Safety Report 20513558 (Version 1)
Quarter: 2022Q1

REPORT INFORMATION
  Report Type: Spontaneous
  Country: US (occurrence: US)
  Receive Date: 20220224
  Receipt Date: 20220224
  Transmission Date: 20220423
  Serious: Yes (Hospitalization)
  Sender: FDA-Public Use
  Company Number: US-AMGEN-USASP2022029510

PATIENT
  Age: 59 Year
  Sex: Male
  Weight: 61.4 kg

DRUGS (1)
  1. MVASI [Suspect]
     Active Substance: BEVACIZUMAB-AWWB
     Indication: Product used for unknown indication
     Dosage: 1100 MILLIGRAM
     Route: 065
     Dates: start: 20210825

REACTIONS (2)
  - Dyspnoea [Unknown]
  - Asthenia [Unknown]
